FAERS Safety Report 9189234 (Version 1)
Quarter: 2013Q1

REPORT INFORMATION
  Report Type: Spontaneous
  Country: US (occurrence: None)
  Receive Date: 20120628
  Receipt Date: 20120628
  Transmission Date: 20140127
  Serious: Yes (Other)
  Sender: FDA-Public Use
  Company Number: ALL1-2012-01962

PATIENT
  Sex: Male

DRUGS (2)
  1. INTUNIV [Suspect]
     Indication: PRODUCT USED FOR UNKNOWN INDICATION
     Dosage: 1 MG, 1X/DAY; QD, ORAL
     Route: 048
     Dates: start: 20120310, end: 20120412
  2. VYVAMSE (LISDEXAMFETAMINE MESILATE) CAPSULE ONGOING [Concomitant]

REACTIONS (2)
  - Anxiety [None]
  - Blood pressure [None]
